FAERS Safety Report 10468696 (Version 2)
Quarter: 2014Q3

REPORT INFORMATION
  Report Type: Report from Study
  Country: US (occurrence: US)
  Receive Date: 20140922
  Receipt Date: 20140922
  Transmission Date: 20150326
  Serious: Yes (Hospitalization)
  Sender: FDA-Public Use
  Company Number: US-ALEXION PHARMACEUTICALS INC-A200800761

PATIENT
  Sex: Male

DRUGS (2)
  1. SOLIRIS [Suspect]
     Active Substance: ECULIZUMAB
     Dosage: 1200 MG, UNK
     Dates: start: 200908
  2. SOLIRIS [Suspect]
     Active Substance: ECULIZUMAB
     Indication: PAROXYSMAL NOCTURNAL HAEMOGLOBINURIA
     Dosage: 900 MG, UNK
     Route: 042
     Dates: end: 200908

REACTIONS (10)
  - Abdominal pain [Unknown]
  - Quality of life decreased [Unknown]
  - Social stay hospitalisation [Unknown]
  - Insomnia [Unknown]
  - Fatigue [Recovering/Resolving]
  - Bone marrow disorder [Unknown]
  - Haemoglobinuria [Recovering/Resolving]
  - Inappropriate schedule of drug administration [Unknown]
  - Haemolysis [Unknown]
  - Headache [Unknown]
